FAERS Safety Report 16087252 (Version 1)
Quarter: 2019Q1

REPORT INFORMATION
  Report Type: Spontaneous
  Country: DE (occurrence: DE)
  Receive Date: 20190319
  Receipt Date: 20190319
  Transmission Date: 20190418
  Serious: Yes (Life-Threatening, Hospitalization, Other)
  Sender: FDA-Public Use
  Company Number: DE-BAUSCH-BL-2019-008091

PATIENT
  Age: 29 Year
  Sex: Male

DRUGS (1)
  1. PREDNISOLONE. [Suspect]
     Active Substance: PREDNISOLONE
     Indication: INTERVERTEBRAL DISC PROTRUSION
     Route: 048

REACTIONS (6)
  - Thrombocytopenia [Recovered/Resolved]
  - Pulmonary haemorrhage [Recovered/Resolved]
  - Anaemia [Recovered/Resolved]
  - Leptospirosis [Recovered/Resolved]
  - Legionella infection [Recovered/Resolved]
  - Acute respiratory distress syndrome [Recovered/Resolved]
